FAERS Safety Report 6815293-0 (Version None)
Quarter: 2010Q3

REPORT INFORMATION
  Report Type: 
  Country: None (occurrence: None)
  Receive Date: 20100702
  Receipt Date: 20100621
  Transmission Date: 20110219
  Serious: Yes (Hospitalization)
  Sender: FDA-Public Use
  Company Number: BR-MEDIMMUNE-MEDI-0011371

PATIENT
  Sex: Male
  Weight: 5.7 kg

DRUGS (3)
  1. SYNAGIS [Suspect]
     Route: 030
     Dates: start: 20100424, end: 20100424
  2. SYNAGIS [Suspect]
     Indication: PNEUMOTHORAX
  3. SODIUM ASCORBATE [Concomitant]
     Indication: VITAMIN SUPPLEMENTATION
     Route: 048

REACTIONS (2)
  - BRONCHIOLITIS [None]
  - VOMITING [None]
